FAERS Safety Report 9267073 (Version 1)
Quarter: 2013Q2

REPORT INFORMATION
  Report Type: Spontaneous
  Country: US (occurrence: US)
  Receive Date: 20130502
  Receipt Date: 20130502
  Transmission Date: 20140414
  Serious: Yes (Hospitalization, Disabling, Other)
  Sender: FDA-Public Use
  Company Number: US-JNJFOC-20130412336

PATIENT
  Age: 62 Year
  Sex: Female
  Weight: 60.3 kg

DRUGS (15)
  1. LEVAQUIN [Suspect]
     Indication: PROPHYLAXIS
     Route: 048
     Dates: start: 20120809, end: 20120830
  2. LEVAQUIN [Suspect]
     Indication: PROPHYLAXIS
     Route: 048
     Dates: start: 20120809, end: 20120830
  3. DAUNORUBICIN [Suspect]
     Indication: ACUTE MYELOID LEUKAEMIA
     Dosage: ON DAYS 1-3
     Route: 040
     Dates: start: 20120813, end: 20120829
  4. AMBAZONE [Suspect]
     Indication: PNEUMONITIS
     Route: 042
     Dates: start: 20120820, end: 20120830
  5. CYTARABINE [Suspect]
     Indication: ACUTE MYELOID LEUKAEMIA
     Route: 042
     Dates: start: 20120813, end: 20120829
  6. INVESTIGATIONAL DRUG [Suspect]
     Indication: ACUTE MYELOID LEUKAEMIA
     Route: 048
     Dates: start: 20120810, end: 20120829
  7. ALLOPURINOL [Concomitant]
     Indication: PROPHYLAXIS
     Route: 065
     Dates: start: 20120809
  8. PROTONIX [Concomitant]
     Indication: GASTROINTESTINAL DISORDER THERAPY
     Route: 065
     Dates: start: 20120809
  9. NORMAL SALINE [Concomitant]
     Indication: FLUID REPLACEMENT
     Route: 042
     Dates: start: 20120809, end: 20120809
  10. TYLENOL [Concomitant]
     Indication: PREMEDICATION
     Route: 065
     Dates: start: 20120809
  11. BENADRYL [Concomitant]
     Indication: PREMEDICATION
     Route: 065
     Dates: start: 20120809
  12. PACKED RED BLOOD CELLS [Concomitant]
     Indication: ANAEMIA
     Route: 065
     Dates: start: 20120810, end: 20120810
  13. SENNA [Concomitant]
     Indication: CONSTIPATION
     Route: 065
     Dates: start: 20120810
  14. LOW-OGESTREL [Concomitant]
     Indication: PREMEDICATION
     Route: 065
     Dates: start: 20120809, end: 20120809
  15. LIDOCAINE [Concomitant]
     Indication: PREMEDICATION
     Route: 065
     Dates: start: 20120809, end: 20120809

REACTIONS (4)
  - Polyneuropathy [Recovering/Resolving]
  - Subarachnoid haemorrhage [Unknown]
  - Interstitial lung disease [Unknown]
  - Pneumonia [Unknown]
